FAERS Safety Report 5764471-0 (Version None)
Quarter: 2008Q2

REPORT INFORMATION
  Report Type: 
  Country: None (occurrence: None)
  Receive Date: 20080610
  Receipt Date: 20080602
  Transmission Date: 20081010
  Serious: Yes (Hospitalization)
  Sender: FDA-Public Use
  Company Number: FR-PFIZER INC-2008046456

PATIENT
  Sex: Female

DRUGS (2)
  1. MEDROL [Suspect]
     Indication: PREMEDICATION
     Route: 048
     Dates: start: 20080327, end: 20080329
  2. TAXOTERE [Suspect]
     Indication: BREAST CANCER STAGE II
     Dosage: DAILY DOSE:150MG
     Route: 042

REACTIONS (6)
  - ABDOMINAL PAIN [None]
  - BACK PAIN [None]
  - DYSPNOEA [None]
  - ERYTHEMA [None]
  - MALAISE [None]
  - NAUSEA [None]
